FAERS Safety Report 5848686-9 (Version None)
Quarter: 2008Q3

REPORT INFORMATION
  Report Type: 
  Country: None (occurrence: None)
  Receive Date: 20080818
  Receipt Date: 20080808
  Transmission Date: 20090109
  Serious: Yes (Hospitalization)
  Sender: FDA-Public Use
  Company Number: FR-ABBOTT-08P-122-0469791-00

PATIENT
  Sex: Female

DRUGS (30)
  1. NORVIR [Suspect]
     Indication: HIV TEST POSITIVE
     Route: 048
     Dates: start: 20071227, end: 20080404
  2. NORVIR [Suspect]
     Dates: start: 20080418
  3. RALTEGRAVIR [Suspect]
     Indication: HIV TEST POSITIVE
     Route: 048
     Dates: start: 20071227, end: 20080404
  4. RALTEGRAVIR [Suspect]
     Dates: start: 20080418
  5. ENFUVIRTIDE [Suspect]
     Indication: HIV TEST POSITIVE
     Route: 048
     Dates: start: 20071227, end: 20080404
  6. ENFUVIRTIDE [Suspect]
     Dates: start: 20080418
  7. DARUNAVIR [Suspect]
     Indication: HIV TEST POSITIVE
     Route: 048
     Dates: start: 20071227, end: 20080404
  8. DARUNAVIR [Suspect]
     Dates: start: 20080418
  9. ETRAVIRINE [Suspect]
     Indication: HIV TEST POSITIVE
     Route: 048
     Dates: start: 20071227, end: 20080404
  10. ETRAVIRINE [Suspect]
     Dates: start: 20080418
  11. ATORVASTATIN [Suspect]
     Indication: HYPERCHOLESTEROLAEMIA
     Route: 048
     Dates: start: 20071227, end: 20080404
  12. ATORVASTATIN [Suspect]
     Dosage: 10 MG, DAILY
     Dates: start: 20080508
  13. ATORVASTATIN [Suspect]
     Dosage: 20 MG, DAILY
  14. CLOPIDOGREL [Concomitant]
     Indication: DRUG USE FOR UNKNOWN INDICATION
     Dosage: LONG TERM TREATMENT
     Route: 048
  15. LYSINE ACETYLSALICYLATE [Concomitant]
     Indication: DRUG USE FOR UNKNOWN INDICATION
     Dosage: LONG TERM TREATMENT
     Route: 048
  16. CIPROFLOXACIN HYDROCHLORIDE [Concomitant]
     Indication: LUNG DISORDER
     Dates: start: 20080404, end: 20080407
  17. CIPROFLOXACIN HYDROCHLORIDE [Concomitant]
  18. PIPERACILLIN AND TAZOBACTAM [Concomitant]
     Indication: PNEUMOCOCCAL SEPSIS
     Dates: start: 20080404, end: 20080407
  19. PIPERACILLIN AND TAZOBACTAM [Concomitant]
  20. CEFOTAXIME [Concomitant]
     Indication: LUNG DISORDER
     Dates: start: 20080408, end: 20080409
  21. CEFOTAXIME [Concomitant]
  22. CEFTRIAXONE [Concomitant]
     Indication: PNEUMOCOCCAL SEPSIS
     Dates: start: 20080410, end: 20080418
  23. CEFTRIAXONE [Concomitant]
  24. VALACYCLOVIR HCL [Concomitant]
     Indication: HERPES SIMPLEX
     Dates: start: 20080409
  25. VALACYCLOVIR HCL [Concomitant]
     Indication: INFECTION PROPHYLAXIS
     Dates: start: 20080501
  26. LINEZOLID [Concomitant]
     Indication: STAPHYLOCOCCAL INFECTION
     Dates: start: 20080410
  27. FILGRASTIM [Concomitant]
     Indication: NEUTROPENIA
     Dates: start: 20080419
  28. ATOVAQUONE [Concomitant]
     Indication: DRUG USE FOR UNKNOWN INDICATION
     Dates: start: 20080423
  29. OLANZAPINE [Concomitant]
     Indication: DRUG USE FOR UNKNOWN INDICATION
  30. OLANZAPINE [Concomitant]
     Dates: start: 20080425

REACTIONS (15)
  - CREPITATIONS [None]
  - DIARRHOEA [None]
  - KIDNEY INFECTION [None]
  - LEUKOPENIA [None]
  - LUNG DISORDER [None]
  - NEUTROPENIA [None]
  - PNEUMOCOCCAL SEPSIS [None]
  - PROCTITIS HERPES [None]
  - PYELONEPHRITIS [None]
  - PYREXIA [None]
  - RENAL FAILURE [None]
  - RHABDOMYOLYSIS [None]
  - STAPHYLOCOCCAL INFECTION [None]
  - TACHYPNOEA [None]
  - VOMITING [None]
